FAERS Safety Report 9234000 (Version 1)
Quarter: 2013Q2

REPORT INFORMATION
  Report Type: Spontaneous
  Country: US (occurrence: US)
  Receive Date: 20130416
  Receipt Date: 20130416
  Transmission Date: 20140414
  Serious: No
  Sender: FDA-Public Use
  Company Number: US-PFIZER INC-2013115166

PATIENT
  Age: 54 Year
  Sex: Female
  Weight: 47.62 kg

DRUGS (3)
  1. ADVIL MIGRAINE [Suspect]
     Indication: MIGRAINE
     Dosage: 200 MG, TWO TIMES A DAY
     Route: 048
     Dates: start: 201304, end: 201304
  2. ADVIL LIQUIGEL [Concomitant]
     Indication: HEADACHE
     Dosage: 400 MG, (2 TABLETS OF 200 MG EACH EVERY 4 HOURS) AS NEEDED
  3. ADVIL LIQUIGEL [Concomitant]
     Indication: PAIN

REACTIONS (1)
  - Drug ineffective [Unknown]
